FAERS Safety Report 16335182 (Version 1)
Quarter: 2019Q2

REPORT INFORMATION
  Report Type: Spontaneous
  Country: US (occurrence: US)
  Receive Date: 20190412
  Receipt Date: 20190412
  Transmission Date: 20190711
  Serious: Yes (Life-Threatening, Hospitalization, Disabling, Congenital Anomaly, Other)
  Sender: FDA-Public Use
  Company Number: None

PATIENT
  Age: 39 Year
  Sex: Female
  Weight: 81.65 kg

DRUGS (8)
  1. ABILIFY 300MG [Concomitant]
  2. INTUNIV [Concomitant]
     Active Substance: GUANFACINE HYDROCHLORIDE
  3. MULTIVITAMIN W/ IRON [Concomitant]
  4. ZOLOFT [Suspect]
     Active Substance: SERTRALINE HYDROCHLORIDE
  5. METFORMIN [Concomitant]
     Active Substance: METFORMIN HYDROCHLORIDE
  6. TOPAMAX [Suspect]
     Active Substance: TOPIRAMATE
     Dosage: ?          QUANTITY:1 DF DOSAGE FORM;?
     Route: 048
  7. PROVIGIL [Concomitant]
     Active Substance: MODAFINIL
  8. VITAMIN E [Concomitant]
     Active Substance: .ALPHA.-TOCOPHEROL

REACTIONS (3)
  - Hemianaesthesia [None]
  - Pain in extremity [None]
  - Sensory disturbance [None]

NARRATIVE: CASE EVENT DATE: 19980109
